FAERS Safety Report 16783295 (Version 1)
Quarter: 2019Q3

REPORT INFORMATION
  Report Type: Spontaneous
  Country: CA (occurrence: CA)
  Receive Date: 20190907
  Receipt Date: 20190907
  Transmission Date: 20191005
  Serious: Yes (Other)
  Sender: FDA-Public Use
  Company Number: CA-AUROBINDO-AUR-APL-2019-057895

PATIENT

DRUGS (1)
  1. RAMIPRIL. [Suspect]
     Active Substance: RAMIPRIL
     Indication: HYPERTENSION
     Dosage: 5 MILLIGRAM
     Route: 065

REACTIONS (6)
  - Swelling face [Unknown]
  - Reaction to colouring [Unknown]
  - Reaction to excipient [Unknown]
  - Rash [Unknown]
  - Product substitution issue [Unknown]
  - Lip swelling [Unknown]
